FAERS Safety Report 25382559 (Version 1)
Quarter: 2025Q2

REPORT INFORMATION
  Report Type: Spontaneous
  Country: US (occurrence: US)
  Receive Date: 20250601
  Receipt Date: 20250601
  Transmission Date: 20250716
  Serious: No
  Sender: BLUEPRINT MEDICINES
  Company Number: US-Blueprint Medicines Corporation-2025-AER-01157

PATIENT
  Age: 78 Year
  Sex: Female

DRUGS (2)
  1. AYVAKIT [Suspect]
     Active Substance: AVAPRITINIB
     Indication: Advanced systemic mastocytosis
     Route: 065
     Dates: start: 20250506
  2. AYVAKIT [Suspect]
     Active Substance: AVAPRITINIB
     Indication: Advanced systemic mastocytosis

REACTIONS (1)
  - Balance disorder [Unknown]
